FAERS Safety Report 21485150 (Version 7)
Quarter: 2023Q2

REPORT INFORMATION
  Report Type: Report from Study
  Country: US (occurrence: US)
  Receive Date: 20221020
  Receipt Date: 20230410
  Transmission Date: 20230722
  Serious: No
  Sender: FDA-Public Use
  Company Number: US-NOVARTISTESTPH-NVSC2022US235429

PATIENT
  Age: 69 Year
  Sex: Female

DRUGS (2)
  1. GLATOPA [Suspect]
     Active Substance: GLATIRAMER ACETATE
     Indication: Multiple sclerosis
     Dosage: 40 MG, TID (OVER 10 YEARS)
     Route: 065
  2. GLATOPA [Suspect]
     Active Substance: GLATIRAMER ACETATE
     Dosage: 40 MG, Q48H
     Route: 054
     Dates: start: 20220101

REACTIONS (8)
  - Device issue [Unknown]
  - Injection site swelling [Unknown]
  - Injection site induration [Unknown]
  - Injection site erythema [Unknown]
  - Drug intolerance [Unknown]
  - Urticaria [Unknown]
  - Rash macular [Unknown]
  - Incorrect dose administered [Unknown]

NARRATIVE: CASE EVENT DATE: 20230326
